FAERS Safety Report 9687151 (Version 1)
Quarter: 2013Q4

REPORT INFORMATION
  Report Type: Spontaneous
  Country: DE (occurrence: DE)
  Receive Date: 20131113
  Receipt Date: 20131113
  Transmission Date: 20140711
  Serious: Yes (Life-Threatening, Hospitalization, Congenital Anomaly, Other)
  Sender: FDA-Public Use
  Company Number: DE-ABBVIE-13P-062-1168582-00

PATIENT
  Sex: Male

DRUGS (2)
  1. ERGENYL CHRONO [Suspect]
     Indication: MATERNAL EXPOSURE TIMING UNSPECIFIED
     Route: 064
  2. KEPPRA [Suspect]
     Indication: MATERNAL EXPOSURE TIMING UNSPECIFIED
     Route: 064

REACTIONS (14)
  - Cyanosis [Unknown]
  - Penile curvature [Not Recovered/Not Resolved]
  - Cryptorchism [Unknown]
  - Congenital foot malformation [Unknown]
  - Dyspnoea [Unknown]
  - Cardio-respiratory distress [Unknown]
  - Transient tachypnoea of the newborn [Unknown]
  - Persistent foetal circulation [Recovered/Resolved]
  - Congenital central nervous system anomaly [Unknown]
  - Brain malformation [Unknown]
  - Brain malformation [Unknown]
  - Cerebral ventricle dilatation [Unknown]
  - Hypotension [Unknown]
  - Foetal exposure during pregnancy [Unknown]
